FAERS Safety Report 14818983 (Version 1)
Quarter: 2018Q2

REPORT INFORMATION
  Report Type: Spontaneous
  Country: US (occurrence: US)
  Receive Date: 20180427
  Receipt Date: 20180427
  Transmission Date: 20180711
  Serious: No
  Sender: FDA-Public Use
  Company Number: US-B.I. PHARMACEUTICALS,INC./RIDGEFIELD-2018-BI-022148

PATIENT
  Age: 71 Year
  Sex: Male

DRUGS (3)
  1. GILOTRIF [Suspect]
     Active Substance: AFATINIB
     Indication: LIP AND/OR ORAL CAVITY CANCER
     Dosage: STRENGTH: 30 MG; ADMINISTRATION CORRECT? YES; ACTION(S) TAKEN WITH PRODUCT: DOSE NOT CHANGED
     Route: 048
     Dates: start: 20180411
  2. ERBITUX [Concomitant]
     Active Substance: CETUXIMAB
     Indication: LIP AND/OR ORAL CAVITY CANCER
     Dosage: FORMULATION: INTRAVENOUS;
     Route: 042
     Dates: start: 201803
  3. LEVOTHYROXINE. [Concomitant]
     Active Substance: LEVOTHYROXINE
     Indication: PRODUCT USED FOR UNKNOWN INDICATION
     Dosage: STRENGTH: 75 MCG; FORMULATION: TABLET
     Route: 048

REACTIONS (2)
  - Pruritus [Not Recovered/Not Resolved]
  - Off label use [Unknown]

NARRATIVE: CASE EVENT DATE: 201804
